FAERS Safety Report 16329131 (Version 2)
Quarter: 2019Q2

REPORT INFORMATION
  Report Type: Report from Study
  Country: US (occurrence: US)
  Receive Date: 20190520
  Receipt Date: 20190524
  Transmission Date: 20190711
  Serious: Yes (Other)
  Sender: FDA-Public Use
  Company Number: US-UCBSA-2018001899

PATIENT
  Age: 69 Year
  Sex: Female

DRUGS (5)
  1. KEPPRA [Suspect]
     Active Substance: LEVETIRACETAM
     Dosage: 500MG 3TABS IN THE AM 4TABS AT NIGHT
  2. KEPPRA [Suspect]
     Active Substance: LEVETIRACETAM
     Indication: PARTIAL SEIZURES
     Dosage: 500MG 3TABS IN THE AM 4TABS AT NIGHT
     Dates: start: 20161006, end: 201903
  3. LACOSAMIDE. [Suspect]
     Active Substance: LACOSAMIDE
     Indication: PARTIAL SEIZURES
     Dosage: 100 MG, 2X/DAY (BID)
  4. LACOSAMIDE. [Suspect]
     Active Substance: LACOSAMIDE
     Indication: EPILEPSY
     Dosage: 200 MILLIGRAM, ONCE DAILY (QD)
  5. KEPPRA [Suspect]
     Active Substance: LEVETIRACETAM
     Indication: EPILEPSY
     Dosage: THREE TABLETS IN HER LAST TWO DAYS
     Dates: start: 201903

REACTIONS (5)
  - Influenza [Not Recovered/Not Resolved]
  - Intentional product misuse [Unknown]
  - Off label use [Unknown]
  - Gallbladder operation [Not Recovered/Not Resolved]
  - Overdose [Unknown]

NARRATIVE: CASE EVENT DATE: 20161006
